FAERS Safety Report 8636910 (Version 7)
Quarter: 2013Q2

REPORT INFORMATION
  Report Type: Spontaneous
  Country: US (occurrence: None)
  Receive Date: 20120530
  Receipt Date: 20130607
  Transmission Date: 20140414
  Serious: Yes (Hospitalization, Other)
  Sender: FDA-Public Use
  Company Number: 2012032342

PATIENT
  Age: 30 Year
  Sex: Female
  Weight: 53.07 kg

DRUGS (3)
  1. BERINERT [Suspect]
     Indication: HEREDITARY ANGIOEDEMA
     Dosage: (4 ML/MIN)
     Route: 042
     Dates: start: 20101201
  2. DILAUDID [Concomitant]
  3. ZOFRAN [Concomitant]

REACTIONS (8)
  - Abdominal pain [None]
  - Vomiting [None]
  - Hereditary angioedema [None]
  - Abortion spontaneous [None]
  - Exposure during pregnancy [None]
  - No therapeutic response [None]
  - Pregnancy [None]
  - Underdose [None]
